FAERS Safety Report 26075527 (Version 1)
Quarter: 2025Q4

REPORT INFORMATION
  Report Type: Spontaneous
  Country: SA (occurrence: SA)
  Receive Date: 20251121
  Receipt Date: 20251121
  Transmission Date: 20260119
  Serious: Yes (Other)
  Sender: B. BRAUN MEDICAL INC.
  Company Number: SA-B. Braun Medical Inc.-SA-BBM-202504455

PATIENT
  Age: 52 Year
  Sex: Male

DRUGS (3)
  1. CEFAZOLIN [Suspect]
     Active Substance: CEFAZOLIN
  2. IOHEXOL [Suspect]
     Active Substance: IOHEXOL
  3. BUPIVACAINE [Concomitant]
     Active Substance: BUPIVACAINE

REACTIONS (1)
  - Subarachnoid haemorrhage [Recovering/Resolving]
